FAERS Safety Report 6992206-2 (Version None)
Quarter: 2010Q3

REPORT INFORMATION
  Report Type: 
  Country: None (occurrence: None)
  Receive Date: 20100917
  Receipt Date: 20100914
  Transmission Date: 20110219
  Serious: Yes (Other)
  Sender: FDA-Public Use
  Company Number: CN-BRISTOL-MYERS SQUIBB COMPANY-15286149

PATIENT
  Age: 32 Year
  Sex: Male

DRUGS (1)
  1. BARACLUDE [Suspect]
     Indication: HEPATITIS B
     Dosage: TAKEN FOR 6 MONTHS
     Route: 048
     Dates: start: 20100301

REACTIONS (3)
  - ABDOMINAL PAIN UPPER [None]
  - ANGINA PECTORIS [None]
  - MOOD ALTERED [None]
